FAERS Safety Report 6226860-X (Version None)
Quarter: 2009Q2

REPORT INFORMATION
  Report Type: 
  Country: None (occurrence: None)
  Receive Date: 20090612
  Receipt Date: 20090522
  Transmission Date: 20091009
  Serious: No
  Sender: FDA-Public Use
  Company Number: US-ABBOTT-09P-163-0575581-00

PATIENT
  Sex: Male
  Weight: 77.18 kg

DRUGS (4)
  1. HUMIRA [Suspect]
     Indication: PSORIASIS
     Route: 058
     Dates: start: 20090101
  2. CLOBEX [Concomitant]
     Indication: PSORIASIS
     Route: 061
  3. OLUX [Concomitant]
     Indication: PSORIASIS
     Dosage: FOAM
     Route: 061
  4. PROTOPIC [Concomitant]
     Indication: PSORIASIS
     Route: 061

REACTIONS (2)
  - INCORRECT STORAGE OF DRUG [None]
  - PRURITUS [None]
